FAERS Safety Report 9354628 (Version 1)
Quarter: 2013Q2

REPORT INFORMATION
  Report Type: Spontaneous
  Country: US (occurrence: US)
  Receive Date: 20130618
  Receipt Date: 20130618
  Transmission Date: 20140414
  Serious: No
  Sender: FDA-Public Use
  Company Number: US-009507513-1306USA003221

PATIENT
  Sex: Female

DRUGS (1)
  1. NASONEX [Suspect]
     Dosage: 4 DF(2 SPRAYS IN EACH NOSTRIL), QD
     Route: 045
     Dates: end: 20130605

REACTIONS (2)
  - Erythema [Unknown]
  - Rash [Unknown]
